FAERS Safety Report 24269671 (Version 5)
Quarter: 2024Q4

REPORT INFORMATION
  Report Type: Spontaneous
  Country: CN (occurrence: CN)
  Receive Date: 20240830
  Receipt Date: 20241213
  Transmission Date: 20250115
  Serious: Yes (Death, Life-Threatening, Hospitalization)
  Sender: JOHNSON AND JOHNSON
  Company Number: CN-JNJFOC-20240877547

PATIENT
  Sex: Male

DRUGS (1)
  1. DARZALEX [Suspect]
     Active Substance: DARATUMUMAB
     Indication: Plasma cell myeloma recurrent
     Dosage: 400MG/20ML/VIAL
     Route: 065
     Dates: start: 20240828

REACTIONS (6)
  - Death [Fatal]
  - Cardiac arrest [Unknown]
  - Brain injury [Unknown]
  - Myocardial injury [Unknown]
  - Infusion related reaction [Unknown]
  - Confusional state [Unknown]

NARRATIVE: CASE EVENT DATE: 20240828
